FAERS Safety Report 7060538-8 (Version None)
Quarter: 2010Q4

REPORT INFORMATION
  Report Type: 
  Country: None (occurrence: None)
  Receive Date: 20101025
  Receipt Date: 20101012
  Transmission Date: 20110411
  Serious: Yes (Hospitalization, Other)
  Sender: FDA-Public Use
  Company Number: US-ELI_LILLY_AND_COMPANY-US201006001094

PATIENT
  Sex: Female
  Weight: 76.19 kg

DRUGS (15)
  1. EVISTA [Suspect]
     Indication: OSTEOPOROSIS
     Dosage: 60 MG, DAILY (1/D)
  2. METOPROLOL SUCCINATE [Concomitant]
     Dosage: 200 MG, DAILY (1/D)
  3. TOPROL-XL [Concomitant]
     Dosage: 100 MG, DAILY (1/D)
  4. LIDODERM [Concomitant]
     Dosage: 5 %, OTHER
  5. DYAZIDE [Concomitant]
     Dosage: 1 D/F, UNK
  6. PROCARDIA XL [Concomitant]
     Dosage: 30 MG, DAILY (1/D)
  7. SIMVASTATIN [Concomitant]
     Dosage: 20 MG, DAILY (1/D)
  8. TRAZODONE [Concomitant]
     Dosage: 50 MG, DAILY (1/D)
  9. SARNA [Concomitant]
  10. BENADRYL [Concomitant]
  11. CORTICOSTEROID NOS [Concomitant]
  12. TYLENOL (CAPLET) [Concomitant]
     Dosage: 500 MG, AS NEEDED
  13. CALCIUM W/VITAMIN D NOS [Concomitant]
     Dosage: 1 D/F, UNK
  14. ADVAIR DISKUS 100/50 [Concomitant]
     Dosage: 1 D/F, 2/D
  15. SPIRIVA [Concomitant]

REACTIONS (12)
  - AFFECTIVE DISORDER [None]
  - ARTHRALGIA [None]
  - CARDIOLIPIN ANTIBODY POSITIVE [None]
  - DECREASED APPETITE [None]
  - HAEMOGLOBIN DECREASED [None]
  - HYPERCOAGULATION [None]
  - INTERNATIONAL NORMALISED RATIO INCREASED [None]
  - IRRITABILITY [None]
  - MOBILITY DECREASED [None]
  - PULMONARY EMBOLISM [None]
  - RASH [None]
  - RHINORRHOEA [None]
